FAERS Safety Report 24810928 (Version 1)
Quarter: 2025Q1

REPORT INFORMATION
  Report Type: Report from Study
  Country: US (occurrence: US)
  Receive Date: 20250106
  Receipt Date: 20250106
  Transmission Date: 20250408
  Serious: No
  Sender: TG THERAPEUTICS
  Company Number: US-TG THERAPEUTICS INC.-TGT004236

PATIENT

DRUGS (2)
  1. UBLITUXIMAB [Suspect]
     Active Substance: UBLITUXIMAB
     Indication: Multiple sclerosis
     Route: 042
     Dates: start: 20231128, end: 20231128
  2. UBLITUXIMAB [Suspect]
     Active Substance: UBLITUXIMAB
     Route: 042
     Dates: start: 20240814, end: 20240814

REACTIONS (9)
  - Visual impairment [Unknown]
  - Dysphagia [Unknown]
  - Memory impairment [Unknown]
  - Depression [Unknown]
  - Tremor [Unknown]
  - Dysarthria [Unknown]
  - Dyskinesia [Unknown]
  - Sleep deficit [Unknown]
  - Drug ineffective [Unknown]
